FAERS Safety Report 12992083 (Version 2)
Quarter: 2016Q4

REPORT INFORMATION
  Report Type: Spontaneous
  Country: JP (occurrence: JP)
  Receive Date: 20161201
  Receipt Date: 20161209
  Transmission Date: 20170207
  Serious: Yes (Other)
  Sender: FDA-Public Use
  Company Number: JP-ASTRAZENECA-2016SF27758

PATIENT
  Age: 49 Year
  Sex: Male

DRUGS (1)
  1. MEROPEN [Suspect]
     Active Substance: MEROPENEM
     Indication: LEPTOSPIROSIS
     Route: 042

REACTIONS (2)
  - Anuria [Unknown]
  - Renal impairment [Recovering/Resolving]
